FAERS Safety Report 19409728 (Version 3)
Quarter: 2021Q2

REPORT INFORMATION
  Report Type: Spontaneous
  Country: US (occurrence: US)
  Receive Date: 20210614
  Receipt Date: 20210614
  Transmission Date: 20210717
  Serious: No
  Sender: FDA-Public Use
  Company Number: US-GALDERMA-US2020019568

PATIENT
  Age: 65 Year
  Sex: Female

DRUGS (1)
  1. MIRVASO [Suspect]
     Active Substance: BRIMONIDINE TARTRATE
     Indication: ROSACEA
     Dosage: 0.33%
     Route: 061
     Dates: start: 201908, end: 201908

REACTIONS (8)
  - Rash [Recovered/Resolved]
  - Rash macular [Recovered/Resolved]
  - Skin warm [Recovered/Resolved]
  - Drug ineffective [Unknown]
  - Erythema [Recovered/Resolved]
  - Dermatitis [Recovered/Resolved]
  - Intentional product misuse [Recovered/Resolved]
  - Intentional overdose [Recovered/Resolved]

NARRATIVE: CASE EVENT DATE: 201908
